FAERS Safety Report 6422660-6 (Version None)
Quarter: 2009Q4

REPORT INFORMATION
  Report Type: 
  Country: None (occurrence: None)
  Receive Date: 20091102
  Receipt Date: 20091020
  Transmission Date: 20100525
  Serious: No
  Sender: FDA-Public Use
  Company Number: US-JNJFOC-20091006585

PATIENT
  Sex: Female
  Weight: 89.36 kg

DRUGS (11)
  1. FENTANYL TRANSDERMAL SYSTEM [Suspect]
     Indication: ARTHRALGIA
     Route: 062
  2. ROXICET [Concomitant]
     Indication: BREAKTHROUGH PAIN
     Route: 048
  3. ALPRAZOLAM [Concomitant]
     Route: 048
  4. SIMVASTATIN [Concomitant]
     Route: 048
  5. GLIPIZIDE [Concomitant]
     Indication: DIABETES MELLITUS
     Route: 048
  6. LEXAPRO [Concomitant]
     Route: 048
  7. ZOCOR [Concomitant]
     Route: 048
  8. METOPROLOL [Concomitant]
     Indication: CARDIAC DISORDER
     Route: 048
  9. METFORMIN [Concomitant]
     Indication: DIABETES MELLITUS
     Route: 048
  10. HYZAAR [Concomitant]
     Indication: BLOOD PRESSURE
     Route: 048
  11. ASPIRIN [Concomitant]
     Indication: CARDIAC DISORDER
     Route: 048

REACTIONS (1)
  - DRUG ADMINISTERED AT INAPPROPRIATE SITE [None]
